FAERS Safety Report 14162753 (Version 1)
Quarter: 2017Q4

REPORT INFORMATION
  Report Type: Spontaneous
  Country: JP (occurrence: JP)
  Receive Date: 20171106
  Receipt Date: 20171106
  Transmission Date: 20180321
  Serious: Yes (Hospitalization)
  Sender: FDA-Public Use
  Company Number: JP-ROCHE-2017052

PATIENT
  Age: 47 Year
  Sex: Male

DRUGS (2)
  1. ROCEPHIN [Suspect]
     Active Substance: CEFTRIAXONE SODIUM
     Indication: INFECTIVE SPONDYLITIS
     Route: 042
     Dates: start: 20170926, end: 20171022
  2. CEFAMEZIN [Suspect]
     Active Substance: CEFAZOLIN
     Indication: CHOLELITHIASIS
     Dosage: DOSAGE IS UNCERTAIN.
     Route: 065
     Dates: start: 20171023

REACTIONS (2)
  - Cholelithiasis [Not Recovered/Not Resolved]
  - Liver disorder [Unknown]

NARRATIVE: CASE EVENT DATE: 201710
